FAERS Safety Report 22660017 (Version 1)
Quarter: 2023Q2

REPORT INFORMATION
  Report Type: Spontaneous
  Country: US (occurrence: US)
  Receive Date: 20230630
  Receipt Date: 20230630
  Transmission Date: 20230722
  Serious: No
  Sender: FDA-Public Use
  Company Number: US-PFIZER INC-202300232889

PATIENT
  Age: 90 Year
  Sex: Female

DRUGS (1)
  1. IBRANCE [Suspect]
     Active Substance: PALBOCICLIB
     Dosage: 100 MG, CYCLIC (DAILY ON DAYS 1 THROUGH 21 FOLLOWED BY 7 DAYS OFF)
     Route: 048
     Dates: start: 20221124

REACTIONS (2)
  - Laboratory test abnormal [Not Recovered/Not Resolved]
  - Alopecia [Not Recovered/Not Resolved]
